FAERS Safety Report 10161186 (Version 1)
Quarter: 2014Q2

REPORT INFORMATION
  Report Type: Spontaneous
  Country: CN (occurrence: CN)
  Receive Date: 20140508
  Receipt Date: 20140508
  Transmission Date: 20141212
  Serious: Yes (Other)
  Sender: FDA-Public Use
  Company Number: CN-GILEAD-2014-0101776

PATIENT
  Sex: Male

DRUGS (2)
  1. HEPSERA [Suspect]
     Indication: HEPATITIS B
     Dosage: UNK
     Route: 065
  2. HEPSERA [Suspect]
     Dosage: 1 DF, QD
     Route: 048
     Dates: start: 2009, end: 2011

REACTIONS (2)
  - Hepatitis B [Recovering/Resolving]
  - Transaminases increased [Not Recovered/Not Resolved]
